FAERS Safety Report 11962136 (Version 1)
Quarter: 2016Q1

REPORT INFORMATION
  Report Type: Spontaneous
  Country: JP (occurrence: JP)
  Receive Date: 20160126
  Receipt Date: 20160126
  Transmission Date: 20160526
  Serious: Yes (Hospitalization, Other)
  Sender: FDA-Public Use
  Company Number: JP-WATSON-2016-00415

PATIENT
  Age: 29 Year
  Sex: Female

DRUGS (5)
  1. SODIUM VALPROATE [Suspect]
     Active Substance: VALPROATE SODIUM
     Indication: GENERALISED TONIC-CLONIC SEIZURE
     Dosage: 800 MG, DAILY
     Route: 065
  2. PHENYTOIN. [Suspect]
     Active Substance: PHENYTOIN
     Indication: GENERALISED TONIC-CLONIC SEIZURE
     Dosage: 250 MG, DAILY
     Route: 042
  3. LEVETIRACETAM (UNKNOWN) [Suspect]
     Active Substance: LEVETIRACETAM
     Indication: GENERALISED TONIC-CLONIC SEIZURE
     Dosage: 1000 MG, DAILY
     Route: 065
  4. LEVETIRACETAM (UNKNOWN) [Suspect]
     Active Substance: LEVETIRACETAM
     Indication: EPILEPSY
  5. SODIUM VALPROATE [Suspect]
     Active Substance: VALPROATE SODIUM
     Indication: EPILEPSY

REACTIONS (2)
  - Rhabdomyolysis [Recovered/Resolved]
  - Drug level decreased [Unknown]
